FAERS Safety Report 12553430 (Version 1)
Quarter: 2016Q3

REPORT INFORMATION
  Report Type: Spontaneous
  Country: DE (occurrence: DE)
  Receive Date: 20160713
  Receipt Date: 20160713
  Transmission Date: 20161109
  Serious: Yes (Other)
  Sender: FDA-Public Use
  Company Number: DE-009507513-1607DEU004386

PATIENT
  Age: 72 Year
  Sex: Female

DRUGS (4)
  1. RANEXA [Concomitant]
     Active Substance: RANOLAZINE
     Indication: ARRHYTHMIA
     Dosage: 750 DOSAGE FORM, EVERY DAY
     Route: 048
  2. VALSACOR [Concomitant]
     Active Substance: VALSARTAN
     Indication: HYPERTENSION
     Dosage: 1 DOSAGE FORM EVERY DAY
  3. SIMVASTATIN. [Suspect]
     Active Substance: SIMVASTATIN
     Indication: HYPERLIPIDAEMIA
     Dosage: 80 MG EVERY DAY
     Route: 048
  4. ADENURIC [Suspect]
     Active Substance: FEBUXOSTAT
     Indication: HYPERURICAEMIA
     Dosage: 80 MG EVERY DAY

REACTIONS (3)
  - Hypoaesthesia [Unknown]
  - Myopathy [Unknown]
  - Renal failure [Unknown]

NARRATIVE: CASE EVENT DATE: 20160621
